FAERS Safety Report 7120851-2 (Version None)
Quarter: 2010Q4

REPORT INFORMATION
  Report Type: 
  Country: None (occurrence: None)
  Receive Date: 20101124
  Receipt Date: 20091102
  Transmission Date: 20110411
  Serious: No
  Sender: FDA-Public Use
  Company Number: US-PFIZER INC-2009280956

PATIENT
  Sex: Female
  Weight: 115 kg

DRUGS (14)
  1. TIKOSYN [Suspect]
     Indication: ATRIAL FIBRILLATION
     Dosage: FREQUENCY: 2X/DAY,
     Dates: start: 20090901
  2. LASIX [Concomitant]
     Dosage: UNK
  3. ACETYLSALICYLIC ACID [Concomitant]
     Dosage: UNK
  4. PREVACID [Concomitant]
     Dosage: UNK
  5. INSULIN [Concomitant]
     Dosage: UNK
  6. MAGNESIUM [Concomitant]
     Dosage: UNK
  7. POTASSIUM CHLORIDE [Concomitant]
     Dosage: UNK
  8. AVAPRO [Concomitant]
     Dosage: UNK
  9. METFORMIN [Concomitant]
  10. BENICAR [Concomitant]
  11. ZYPREXA [Concomitant]
  12. CELEXA [Concomitant]
  13. FLECAINIDE [Concomitant]
  14. ATENOLOL [Concomitant]

REACTIONS (5)
  - APATHY [None]
  - ARTHRITIS [None]
  - BLOOD MAGNESIUM DECREASED [None]
  - DECREASED APPETITE [None]
  - FEELING ABNORMAL [None]
